FAERS Safety Report 8784257 (Version 1)
Quarter: 2012Q4

REPORT INFORMATION
  Report Type: 
  Country: US (occurrence: US)
  Receive Date: 20120913
  Receipt Date: 20120913
  Transmission Date: 20130627
  Serious: Yes (Other)
  Sender: FDA-Public Use
  Company Number: GXBR2012US001856

PATIENT
  Age: 58 Year
  Sex: Female
  Weight: 122.45 kg

DRUGS (3)
  1. CHOLESTYRAMINE [Suspect]
     Indication: TOXICITY TO VARIOUS AGENTS
     Dosage: 8 g, TID
     Route: 048
     Dates: start: 20120831, end: 20120903
  2. DIOVAN [Concomitant]
     Indication: HYPERTENSION
     Dosage: UNK DF, UNK
     Route: 048
  3. INSULIN [Concomitant]
     Indication: DIABETES MELLITUS
     Dosage: UNK DF, UNK
     Route: 058

REACTIONS (11)
  - Blood pressure increased [Recovering/Resolving]
  - Chest pain [Recovering/Resolving]
  - Dyspnoea [Recovering/Resolving]
  - Oedema peripheral [Recovering/Resolving]
  - Heart rate increased [Recovered/Resolved]
  - Malaise [Recovering/Resolving]
  - Dehydration [Recovered/Resolved]
  - Gastrooesophageal reflux disease [Recovered/Resolved]
  - Dyspepsia [Recovered/Resolved]
  - Throat irritation [Recovered/Resolved]
  - Abdominal distension [Recovering/Resolving]
